FAERS Safety Report 9033343 (Version 1)
Quarter: 2013Q1

REPORT INFORMATION
  Report Type: Spontaneous
  Country: US (occurrence: US)
  Receive Date: 20130128
  Receipt Date: 20130128
  Transmission Date: 20140127
  Serious: No
  Sender: FDA-Public Use
  Company Number: US-009507513-1301USA012762

PATIENT
  Sex: Male

DRUGS (2)
  1. MIRALAX [Suspect]
     Indication: PRODUCT USED FOR UNKNOWN INDICATION
     Dosage: 25.5 G, ONCE
     Route: 048
  2. MIRALAX [Suspect]
     Dosage: 17 G, QD
     Route: 048

REACTIONS (6)
  - Abdominal distension [Unknown]
  - Diarrhoea [Unknown]
  - Flatulence [Unknown]
  - Drug effect delayed [Unknown]
  - Overdose [Unknown]
  - Expired drug administered [Unknown]
